FAERS Safety Report 20700902 (Version 1)
Quarter: 2022Q2

REPORT INFORMATION
  Report Type: Spontaneous
  Country: US (occurrence: US)
  Receive Date: 20220412
  Receipt Date: 20220412
  Transmission Date: 20220721
  Serious: No
  Sender: FDA-Public Use
  Company Number: US-PFIZER INC-2021752336

PATIENT
  Age: 56 Year
  Sex: Female
  Weight: 70.295 kg

DRUGS (9)
  1. IBRANCE [Suspect]
     Active Substance: PALBOCICLIB
     Indication: Breast cancer female
     Dosage: 125 MG
     Dates: start: 20181207
  2. IBRANCE [Suspect]
     Active Substance: PALBOCICLIB
     Dosage: 125 MG
     Dates: start: 20200515
  3. IBRANCE [Suspect]
     Active Substance: PALBOCICLIB
     Dosage: 100 MG, CYCLIC (7 DAYS ON, 7 DAYS OFF )
     Route: 048
     Dates: start: 20210419
  4. PROLIA [Concomitant]
     Active Substance: DENOSUMAB
     Dosage: 60 MG/ML (SYRINGE)
  5. VITAMIN D3 [Concomitant]
     Active Substance: CHOLECALCIFEROL
     Dosage: 250 UG
  6. CALCIUM [Concomitant]
     Active Substance: CALCIUM
     Dosage: 600 MG
  7. LETROZOLE [Concomitant]
     Active Substance: LETROZOLE
     Dosage: 2.5 MG
  8. VITAMIN B12 [Concomitant]
     Active Substance: CYANOCOBALAMIN
     Dosage: 2500 UG
  9. GABAPENTIN [Concomitant]
     Active Substance: GABAPENTIN
     Dosage: 100 MG

REACTIONS (3)
  - Product dose omission issue [Unknown]
  - Inappropriate schedule of product administration [Unknown]
  - Pain [Unknown]
